FAERS Safety Report 24706253 (Version 1)
Quarter: 2024Q4

REPORT INFORMATION
  Report Type: Spontaneous
  Country: RO (occurrence: RO)
  Receive Date: 20241206
  Receipt Date: 20241206
  Transmission Date: 20250115
  Serious: Yes (Other)
  Sender: NOVARTIS
  Company Number: RO-002147023-NVSC2024RO229895

PATIENT
  Age: 68 Year
  Sex: Female

DRUGS (3)
  1. KISQALI [Suspect]
     Active Substance: RIBOCICLIB
     Indication: Breast cancer
     Dosage: 200 MG (3 TB/DAY, 21 DAYS)
     Route: 065
     Dates: start: 202206
  2. FULVESTRANT [Concomitant]
     Active Substance: FULVESTRANT
     Indication: Breast cancer
     Dosage: 250 MG (4 INJECTION IN FIRST MONTH, THEN 2 AT 28 DAYS)
     Route: 065
     Dates: start: 202206
  3. ZOLEDRONIC ACID [Concomitant]
     Active Substance: ZOLEDRONIC ACID
     Indication: Product used for unknown indication
     Dosage: 4 MG (4 INJECTION IN FIRST MONTH, THEN 2 AT 28 DAYS), (ONCE EVERY 28 DAYS)
     Route: 065
     Dates: start: 202206

REACTIONS (2)
  - Hepatomegaly [Unknown]
  - Neutropenia [Unknown]

NARRATIVE: CASE EVENT DATE: 20221201
